FAERS Safety Report 13153975 (Version 1)
Quarter: 2017Q1

REPORT INFORMATION
  Report Type: Spontaneous
  Country: NO (occurrence: NO)
  Receive Date: 20170126
  Receipt Date: 20170126
  Transmission Date: 20170428
  Serious: Yes (Hospitalization)
  Sender: FDA-Public Use
  Company Number: NO-ALK-ABELLO A/S-1062385

PATIENT
  Age: 16 Year
  Sex: Male

DRUGS (1)
  1. GRASTEK [Suspect]
     Active Substance: PHLEUM PRATENSE POLLEN

REACTIONS (6)
  - Heart rate increased [Recovering/Resolving]
  - Mouth swelling [Not Recovered/Not Resolved]
  - Oral pruritus [Recovering/Resolving]
  - Dysphagia [Recovering/Resolving]
  - Chest discomfort [Recovering/Resolving]
  - Pharyngeal oedema [Recovering/Resolving]
